FAERS Safety Report 14639920 (Version 1)
Quarter: 2018Q1

REPORT INFORMATION
  Report Type: Other
  Country: US (occurrence: US)
  Receive Date: 20180315
  Receipt Date: 20180315
  Transmission Date: 20180509
  Serious: Yes (Death, Other)
  Sender: FDA-Public Use
  Company Number: US-VELOXIS PHARMACEUTICALS-2043799

PATIENT
  Age: 24 Month
  Sex: Female

DRUGS (7)
  1. CYTARABINE. [Suspect]
     Active Substance: CYTARABINE
  2. VANCOMYCIN [Suspect]
     Active Substance: VANCOMYCIN
  3. CEFEPIME [Suspect]
     Active Substance: CEFEPIME HYDROCHLORIDE
  4. ENVARSUS XR [Suspect]
     Active Substance: TACROLIMUS
     Indication: GRAFT VERSUS HOST DISEASE
  5. DAUNORUBICIN [Suspect]
     Active Substance: DAUNORUBICIN
  6. METHOTREXATE. [Concomitant]
     Active Substance: METHOTREXATE
  7. METHYLPREDNISOLONE. [Concomitant]
     Active Substance: METHYLPREDNISOLONE

REACTIONS (3)
  - Intentional product use issue [Unknown]
  - Graft versus host disease in skin [Recovering/Resolving]
  - Sepsis [Fatal]
